FAERS Safety Report 6216419-2 (Version None)
Quarter: 2009Q2

REPORT INFORMATION
  Report Type: 
  Country: None (occurrence: None)
  Receive Date: 20090605
  Receipt Date: 20090526
  Transmission Date: 20091009
  Serious: Yes (Hospitalization)
  Sender: FDA-Public Use
  Company Number: US-ABBOTT-09P-163-0575706-00

PATIENT
  Sex: Female

DRUGS (4)
  1. HUMIRA [Suspect]
     Indication: ANKYLOSING SPONDYLITIS
     Route: 058
     Dates: end: 20090101
  2. HUMIRA [Suspect]
     Route: 058
     Dates: start: 20090401
  3. HUMIRA [Suspect]
     Dosage: SYRINGE
     Route: 058
     Dates: start: 20040101
  4. SYNTHROID [Concomitant]
     Indication: HYPOTHYROIDISM

REACTIONS (9)
  - ATELECTASIS [None]
  - BLISTER INFECTED [None]
  - CHEST PAIN [None]
  - DECUBITUS ULCER [None]
  - INJECTION SITE HAEMATOMA [None]
  - INJECTION SITE HAEMORRHAGE [None]
  - INJECTION SITE PAIN [None]
  - LOWER RESPIRATORY TRACT INFECTION [None]
  - TENDON RUPTURE [None]
